FAERS Safety Report 4817387-8 (Version None)
Quarter: 2005Q4

REPORT INFORMATION
  Report Type: 
  Country: None (occurrence: None)
  Receive Date: 20051101
  Receipt Date: 20050831
  Transmission Date: 20060501
  Serious: Yes (Hospitalization)
  Sender: FDA-Public Use
  Company Number: 200512495JP

PATIENT
  Age: 52 Year
  Sex: Male

DRUGS (6)
  1. ALLEGRA [Suspect]
     Indication: ECZEMA
     Dosage: DOSE: UNK
     Dates: start: 20050826, end: 20050831
  2. PARULEON [Concomitant]
  3. ROHYPNOL [Concomitant]
  4. GOODMIN [Concomitant]
  5. DEPAKENE [Concomitant]
     Dates: start: 20050729
  6. TEGRETOL [Concomitant]
     Dates: start: 20050729

REACTIONS (5)
  - ALANINE AMINOTRANSFERASE INCREASED [None]
  - ASPARTATE AMINOTRANSFERASE INCREASED [None]
  - BLOOD LACTATE DEHYDROGENASE INCREASED [None]
  - HEPATIC FUNCTION ABNORMAL [None]
  - NEUROSIS [None]
